FAERS Safety Report 6301208-0 (Version None)
Quarter: 2009Q3

REPORT INFORMATION
  Report Type: 
  Country: None (occurrence: None)
  Receive Date: 20090807
  Receipt Date: 20090729
  Transmission Date: 20100115
  Serious: Yes (Other)
  Sender: FDA-Public Use
  Company Number: PHEH2009US08359

PATIENT
  Age: 82 Year
  Sex: Female

DRUGS (3)
  1. RECLAST [Suspect]
     Dosage: UNK, UNK
  2. RECLAST [Suspect]
     Dosage: UNK
     Dates: start: 20090702, end: 20090702
  3. OXYCODONE HCL [Suspect]
     Indication: PAIN
     Dosage: UNK

REACTIONS (7)
  - BACK PAIN [None]
  - CONFUSIONAL STATE [None]
  - INFLUENZA LIKE ILLNESS [None]
  - MUSCULOSKELETAL CHEST PAIN [None]
  - MUSCULOSKELETAL PAIN [None]
  - NECK PAIN [None]
  - PAIN IN EXTREMITY [None]
